FAERS Safety Report 13451117 (Version 1)
Quarter: 2017Q2

REPORT INFORMATION
  Report Type: Spontaneous
  Country: US (occurrence: US)
  Receive Date: 20170417
  Receipt Date: 20170417
  Transmission Date: 20170830
  Serious: Yes (Other)
  Sender: FDA-Public Use
  Company Number: None

PATIENT
  Age: 63 Year
  Sex: Female
  Weight: 56.25 kg

DRUGS (12)
  1. VITAMIN B12 [Concomitant]
     Active Substance: CYANOCOBALAMIN
  2. SYNTHROID [Concomitant]
     Active Substance: LEVOTHYROXINE SODIUM
  3. BIOTIN [Concomitant]
     Active Substance: BIOTIN
  4. LYRICA [Suspect]
     Active Substance: PREGABALIN
     Indication: NEURALGIA
     Dosage: ?          QUANTITY:1 TABLET(S);?
     Route: 048
     Dates: start: 20161128, end: 20170119
  5. ARAVA [Concomitant]
     Active Substance: LEFLUNOMIDE
  6. LYRICA [Suspect]
     Active Substance: PREGABALIN
     Indication: SCIATICA
     Dosage: ?          QUANTITY:1 TABLET(S);?
     Route: 048
     Dates: start: 20161128, end: 20170119
  7. PROBIOTIC [Concomitant]
     Active Substance: PROBIOTICS NOS
  8. AREDS [Concomitant]
     Active Substance: MINERALS\VITAMINS
  9. FIBER PILL [Concomitant]
  10. FOLATE [Concomitant]
     Active Substance: FOLATE SODIUM
  11. ZOLOFT [Concomitant]
     Active Substance: SERTRALINE HYDROCHLORIDE
  12. XELJANZ [Concomitant]
     Active Substance: TOFACITINIB CITRATE

REACTIONS (4)
  - Fatigue [None]
  - Alopecia [None]
  - Depression [None]
  - Impaired work ability [None]

NARRATIVE: CASE EVENT DATE: 20170119
